FAERS Safety Report 4437042-6 (Version None)
Quarter: 2004Q3

REPORT INFORMATION
  Report Type: 
  Country: None (occurrence: None)
  Receive Date: 20040830
  Receipt Date: 20040614
  Transmission Date: 20050211
  Serious: Yes (Hospitalization)
  Sender: FDA-Public Use
  Company Number: US-GLAXOSMITHKLINE-A0514516A

PATIENT
  Age: 66 Year
  Sex: Female
  Weight: 70.9 kg

DRUGS (8)
  1. COREG [Suspect]
     Route: 048
     Dates: start: 20040517
  2. PLAVIX [Concomitant]
     Dosage: 10MG PER DAY
     Dates: start: 20040517
  3. SPIRONOLACTONE [Concomitant]
     Dosage: 12.5MG PER DAY
  4. ASPIRIN [Concomitant]
     Dosage: 81MG PER DAY
     Dates: start: 20040517
  5. CRESTOR [Concomitant]
     Dosage: 10MG PER DAY
     Dates: start: 20040517
  6. ACIPHEX [Concomitant]
     Dosage: 20MG PER DAY
  7. LASIX [Concomitant]
     Dosage: 20MG ALTERNATE DAYS
  8. TOPROL-XL [Concomitant]
     Dates: end: 20040516

REACTIONS (17)
  - ASTHENIA [None]
  - CHEST PAIN [None]
  - DEHYDRATION [None]
  - DYSKINESIA [None]
  - ENZYME ABNORMALITY [None]
  - EXTRASYSTOLES [None]
  - FEELING ABNORMAL [None]
  - HORMONE LEVEL ABNORMAL [None]
  - HUNGER [None]
  - HYPERMETABOLISM [None]
  - INCREASED APPETITE [None]
  - MUSCULAR WEAKNESS [None]
  - NAUSEA [None]
  - NERVOUSNESS [None]
  - TINNITUS [None]
  - TREMOR [None]
  - WEIGHT DECREASED [None]
